FAERS Safety Report 6011912-X (Version None)
Quarter: 2008Q4

REPORT INFORMATION
  Report Type: 
  Country: None (occurrence: None)
  Receive Date: 20081218
  Receipt Date: 20081001
  Transmission Date: 20090506
  Serious: No
  Sender: FDA-Public Use
  Company Number: US-ASTRAZENECA-2008UW21422

PATIENT
  Sex: Female

DRUGS (4)
  1. CRESTOR [Suspect]
     Route: 048
  2. COZAAR [Suspect]
  3. ASPIRIN [Suspect]
  4. DIURETIC [Suspect]

REACTIONS (1)
  - OEDEMA PERIPHERAL [None]
